FAERS Safety Report 23312283 (Version 1)
Quarter: 2023Q4

REPORT INFORMATION
  Report Type: Spontaneous
  Country: PT (occurrence: PT)
  Receive Date: 20231219
  Receipt Date: 20231219
  Transmission Date: 20240110
  Serious: Yes (Hospitalization, Other)
  Sender: FDA-Public Use
  Company Number: None

PATIENT

DRUGS (40)
  1. GABAPENTIN [Suspect]
     Active Substance: GABAPENTIN
     Indication: Product used for unknown indication
     Dosage: 600 MILLIGRAM, TID
     Route: 065
     Dates: start: 202206
  2. GABAPENTIN [Suspect]
     Active Substance: GABAPENTIN
     Dosage: 600 MILLIGRAM, QD
     Route: 065
     Dates: start: 202206
  3. GABAPENTIN [Suspect]
     Active Substance: GABAPENTIN
     Dosage: 600 MILLIGRAM, QD
     Route: 065
  4. GABAPENTIN [Suspect]
     Active Substance: GABAPENTIN
     Dosage: 600 MILLIGRAM, Q8H, TIMES A DAY
     Route: 065
     Dates: start: 20220622
  5. OLANZAPINE [Suspect]
     Active Substance: OLANZAPINE
     Indication: Product used for unknown indication
     Dosage: 15 MILLIGRAM, QD
     Route: 065
  6. OLANZAPINE [Suspect]
     Active Substance: OLANZAPINE
     Dosage: 15 MILLIGRAM, QD
     Route: 065
     Dates: start: 20220921
  7. OLANZAPINE [Suspect]
     Active Substance: OLANZAPINE
     Dosage: 15 MILLIGRAM, QD
     Route: 065
     Dates: end: 20220707
  8. QUETIAPINE FUMARATE [Suspect]
     Active Substance: QUETIAPINE FUMARATE
     Indication: Product used for unknown indication
     Dosage: 100 MILLIGRAM, TID
     Route: 065
  9. QUETIAPINE FUMARATE [Suspect]
     Active Substance: QUETIAPINE FUMARATE
     Dosage: UNK
     Route: 065
  10. QUETIAPINE FUMARATE [Suspect]
     Active Substance: QUETIAPINE FUMARATE
     Dosage: 200 MILLIGRAM
     Route: 065
  11. QUETIAPINE FUMARATE [Suspect]
     Active Substance: QUETIAPINE FUMARATE
     Dosage: 100 MILLIGRAM, QD, 100MG 5ID
     Route: 065
     Dates: start: 20220707, end: 20220818
  12. QUETIAPINE FUMARATE [Suspect]
     Active Substance: QUETIAPINE FUMARATE
     Dosage: 100 MILLIGRAM, QD
     Route: 065
     Dates: end: 20220622
  13. QUETIAPINE FUMARATE [Suspect]
     Active Substance: QUETIAPINE FUMARATE
     Dosage: 100 MILLIGRAM, QD
     Route: 065
  14. QUETIAPINE FUMARATE [Suspect]
     Active Substance: QUETIAPINE FUMARATE
     Dosage: 100 MILLIGRAM, Q8H, TID
     Route: 065
     Dates: end: 20220707
  15. QUETIAPINE FUMARATE [Suspect]
     Active Substance: QUETIAPINE FUMARATE
     Dosage: 200 MILLIGRAM, QD
     Route: 065
  16. PAROXETINE HYDROCHLORIDE [Suspect]
     Active Substance: PAROXETINE HYDROCHLORIDE\PAROXETINE HYDROCHLORIDE ANHYDROUS
     Indication: Product used for unknown indication
     Dosage: 20 MILLIGRAM, TID
     Route: 065
     Dates: start: 202206
  17. PAROXETINE HYDROCHLORIDE [Suspect]
     Active Substance: PAROXETINE HYDROCHLORIDE\PAROXETINE HYDROCHLORIDE ANHYDROUS
     Dosage: 20 MILLIGRAM, BID
     Route: 065
     Dates: start: 20220818, end: 20220921
  18. PAROXETINE HYDROCHLORIDE [Suspect]
     Active Substance: PAROXETINE HYDROCHLORIDE\PAROXETINE HYDROCHLORIDE ANHYDROUS
     Dosage: 20 MILLIGRAM, QD
     Route: 065
     Dates: start: 20220707, end: 20220818
  19. PAROXETINE HYDROCHLORIDE [Suspect]
     Active Substance: PAROXETINE HYDROCHLORIDE\PAROXETINE HYDROCHLORIDE ANHYDROUS
     Dosage: 20 MILLIGRAM, Q8H, TID
     Route: 065
     Dates: end: 20220707
  20. PAROXETINE HYDROCHLORIDE [Suspect]
     Active Substance: PAROXETINE HYDROCHLORIDE\PAROXETINE HYDROCHLORIDE ANHYDROUS
     Dosage: 20 MILLIGRAM, QD
     Route: 065
     Dates: start: 202206, end: 20220622
  21. CLONAZEPAM [Suspect]
     Active Substance: CLONAZEPAM
     Indication: Product used for unknown indication
     Dosage: 2 MILLIGRAM, QD
     Route: 065
     Dates: start: 202206
  22. CLONAZEPAM [Suspect]
     Active Substance: CLONAZEPAM
     Dosage: 6 MILLIGRAM, QD, 2 MG, TID
     Route: 065
  23. CLONAZEPAM [Suspect]
     Active Substance: CLONAZEPAM
     Dosage: ? 2 ONCE A DAY
     Route: 065
     Dates: start: 20220818
  24. CLONAZEPAM [Suspect]
     Active Substance: CLONAZEPAM
     Dosage: 2 MILLIGRAM, QD
     Route: 065
     Dates: start: 20220622
  25. CLONAZEPAM [Suspect]
     Active Substance: CLONAZEPAM
     Dosage: 2 MG ? + ? + 1
     Route: 065
  26. CHLORPROMAZINE HYDROCHLORIDE [Suspect]
     Active Substance: CHLORPROMAZINE HYDROCHLORIDE
     Indication: Product used for unknown indication
     Dosage: 100 MILLIGRAM, QD
     Route: 065
     Dates: start: 202206
  27. CHLORPROMAZINE HYDROCHLORIDE [Suspect]
     Active Substance: CHLORPROMAZINE HYDROCHLORIDE
     Dosage: 100 MILLIGRAM, QD
     Route: 065
     Dates: start: 20220622
  28. RISPERIDONE [Suspect]
     Active Substance: RISPERIDONE
     Indication: Product used for unknown indication
     Dosage: 1 MILLIGRAM, QD
     Route: 065
     Dates: start: 20220818
  29. PANTOPRAZOLE [Concomitant]
     Active Substance: PANTOPRAZOLE
     Indication: Product used for unknown indication
     Dosage: 20 MILLIGRAM, QD
     Route: 065
  30. LEVOTHYROXINE [Concomitant]
     Active Substance: LEVOTHYROXINE
     Indication: Product used for unknown indication
     Dosage: 25 MICROGRAM, QD
     Route: 065
  31. METFORMIN [Concomitant]
     Active Substance: METFORMIN HYDROCHLORIDE
     Indication: Product used for unknown indication
     Dosage: 1000 MILLIGRAM, QD
     Route: 065
  32. CHOLECALCIFEROL [Concomitant]
     Active Substance: CHOLECALCIFEROL
     Indication: Product used for unknown indication
     Dosage: 22400 INTERNATIONAL UNIT, 1 CYCLICAL EVERY 28 DAYS
     Route: 065
  33. EMPAGLIFLOZIN, METFORMIN [Concomitant]
     Indication: Product used for unknown indication
     Dosage: 1 DOSAGE FORM, QD, MEDICINAL_PRODUCT : EMPAGLIFLOZIN + METFORMIN 12.5 + 100 MG, 12.5MG/100MG BID
     Route: 065
  34. FOLIC ACID [Concomitant]
     Active Substance: FOLIC ACID
     Indication: Product used for unknown indication
     Dosage: 5 MILLIGRAM, QD
     Route: 065
  35. GLICLAZIDE [Concomitant]
     Active Substance: GLICLAZIDE
     Indication: Product used for unknown indication
     Dosage: 30 MILLIGRAM, QD
     Route: 065
  36. PROPRANOLOL [Concomitant]
     Active Substance: PROPRANOLOL HYDROCHLORIDE
     Indication: Product used for unknown indication
     Dosage: 40 MILLIGRAM, QD
     Route: 065
  37. FENOFIBRATE [Concomitant]
     Active Substance: FENOFIBRATE
     Indication: Product used for unknown indication
     Dosage: 1 DOSAGE FORM, QD
     Route: 065
  38. ROSUVASTATIN [Concomitant]
     Active Substance: ROSUVASTATIN
     Indication: Product used for unknown indication
     Dosage: 10 MILLIGRAM, QD
     Route: 065
  39. FLUTICASONE PROPIONATE [Concomitant]
     Active Substance: FLUTICASONE PROPIONATE
     Indication: Product used for unknown indication
     Dosage: 1 DOSAGE FORM, 50/250 MICROGRAM
     Route: 065
  40. FLUTICASONE PROPIONATE [Concomitant]
     Active Substance: FLUTICASONE PROPIONATE
     Dosage: 250 MCG/DOSE;50 MCG/DOSE, BID
     Route: 065

REACTIONS (19)
  - Hallucination, auditory [Recovered/Resolved]
  - Violence-related symptom [Recovered/Resolved]
  - Suicidal ideation [Recovered/Resolved]
  - Pseudohallucination [Recovered/Resolved]
  - Affective disorder [Recovered/Resolved]
  - Anhedonia [Recovering/Resolving]
  - Self-injurious ideation [Recovered/Resolved]
  - Somnolence [Unknown]
  - Irritability [Unknown]
  - Agitation [Unknown]
  - Weight decreased [Unknown]
  - Middle insomnia [Unknown]
  - Anxiety [Unknown]
  - Nightmare [Unknown]
  - Initial insomnia [Unknown]
  - Panic attack [Unknown]
  - Fatigue [Unknown]
  - Depressed mood [Unknown]
  - Accidental overdose [Unknown]

NARRATIVE: CASE EVENT DATE: 20220622
